FAERS Safety Report 7164154-9 (Version None)
Quarter: 2010Q4

REPORT INFORMATION
  Report Type: 
  Country: None (occurrence: None)
  Receive Date: 20101203
  Receipt Date: 20101119
  Transmission Date: 20110411
  Serious: Yes (Death)
  Sender: FDA-Public Use
  Company Number: 022335

PATIENT
  Sex: Male
  Weight: 65.9 kg

DRUGS (1)
  1. CIMZIA [Suspect]
     Dosage: 200 MG 1X/14 DAYS SUBCUTANEOUS
     Route: 058

REACTIONS (1)
  - DEATH [None]
